FAERS Safety Report 25086580 (Version 1)
Quarter: 2025Q1

REPORT INFORMATION
  Report Type: Report from Study
  Country: US (occurrence: US)
  Receive Date: 20250317
  Receipt Date: 20250317
  Transmission Date: 20250409
  Serious: No
  Sender: SANDOZ
  Company Number: US-SANDOZ-SDZ2025US015497

PATIENT
  Sex: Female

DRUGS (2)
  1. OMNITROPE [Suspect]
     Active Substance: SOMATROPIN
     Indication: Short stature
     Dosage: 0.4 MG 2 DOSE EVERY N/A N/A (OMNITROPE 5 MG/1.5 ML)
     Route: 058
  2. OMNITROPE [Suspect]
     Active Substance: SOMATROPIN
     Indication: Short stature
     Dosage: 0.4 MG 2 DOSE EVERY N/A N/A (OMNITROPE 5 MG/1.5 ML)
     Route: 058

REACTIONS (2)
  - Injection site discomfort [Unknown]
  - Needle issue [Unknown]
